FAERS Safety Report 9653148 (Version 1)
Quarter: 2013Q4

REPORT INFORMATION
  Report Type: Spontaneous
  Country: US (occurrence: US)
  Receive Date: 20131029
  Receipt Date: 20131029
  Transmission Date: 20140711
  Serious: No
  Sender: FDA-Public Use
  Company Number: US-BIOGENIDEC-2013BI078843

PATIENT
  Age: 33 Year
  Sex: Female

DRUGS (6)
  1. TECFIDERA [Suspect]
     Indication: MULTIPLE SCLEROSIS
     Route: 048
     Dates: start: 20130726, end: 20130802
  2. CALTRATE [Concomitant]
  3. VITAMIN D [Concomitant]
  4. MULTIVITAMIN [Concomitant]
  5. CRANBERRY EXTRACT [Concomitant]
  6. VITAMIN C [Concomitant]

REACTIONS (1)
  - Sensory disturbance [Not Recovered/Not Resolved]
